FAERS Safety Report 7455270-2 (Version None)
Quarter: 2011Q2

REPORT INFORMATION
  Report Type: 
  Country: None (occurrence: None)
  Receive Date: 20110503
  Receipt Date: 20110428
  Transmission Date: 20111010
  Serious: Yes (Hospitalization)
  Sender: FDA-Public Use
  Company Number: PHHY2011DO35661

PATIENT
  Age: 60 Year
  Sex: Female

DRUGS (2)
  1. AMLODIPINE [Concomitant]
     Dosage: 5 MG, QD
     Route: 048
  2. ZOLEDRONIC ACID [Suspect]
     Indication: OSTEOPOROSIS
     Dosage: 5 MG IV ANNUALLY
     Route: 042

REACTIONS (4)
  - RESPIRATION ABNORMAL [None]
  - MUSCLE SPASMS [None]
  - HYPOCALCAEMIA [None]
  - TACHYCARDIA [None]
